FAERS Safety Report 9357605 (Version 3)
Quarter: 2013Q3

REPORT INFORMATION
  Report Type: Spontaneous
  Country: JP (occurrence: None)
  Receive Date: 20130617
  Receipt Date: 20130722
  Transmission Date: 20140515
  Serious: Yes (Other)
  Sender: FDA-Public Use
  Company Number: TCI2013A03244

PATIENT
  Sex: Male

DRUGS (4)
  1. NESINA [Suspect]
     Indication: TYPE 2 DIABETES MELLITUS
     Route: 048
     Dates: start: 2012
  2. JANUVIA (SITAGLIPTIN PHOSPHATE) [Suspect]
     Dates: start: 201304, end: 20130428
  3. BLOPRESS (CANDESARTAN CILEXETIL) [Concomitant]
  4. LASIX (FUROSEMIDE) [Concomitant]

REACTIONS (3)
  - Pancreatitis acute [None]
  - Musculoskeletal discomfort [None]
  - Back pain [None]
